FAERS Safety Report 13975400 (Version 1)
Quarter: 2017Q3

REPORT INFORMATION
  Report Type: Report from Study
  Country: ID (occurrence: ID)
  Receive Date: 20170915
  Receipt Date: 20170915
  Transmission Date: 20171128
  Serious: Yes (Death, Hospitalization)
  Sender: FDA-Public Use
  Company Number: ID-BAYER-2017-109029

PATIENT
  Age: 34 Year
  Sex: Male

DRUGS (4)
  1. NEXAVAR [Suspect]
     Active Substance: SORAFENIB
     Indication: HEPATOCELLULAR CARCINOMA
     Dosage: 200 MG, BID
     Route: 048
     Dates: start: 201706
  2. NEXAVAR [Suspect]
     Active Substance: SORAFENIB
     Indication: HEPATOCELLULAR CARCINOMA
     Dosage: 200 MG, QD
     Route: 048
     Dates: start: 201706, end: 201706
  3. NEXAVAR [Suspect]
     Active Substance: SORAFENIB
     Indication: HEPATOCELLULAR CARCINOMA
     Dosage: 200 MG, QD
     Route: 048
     Dates: end: 20170630
  4. NEXAVAR [Suspect]
     Active Substance: SORAFENIB
     Indication: HEPATOCELLULAR CARCINOMA
     Dosage: 200 MG, BID
     Route: 048
     Dates: start: 20170413, end: 2017

REACTIONS (6)
  - Alopecia [Recovered/Resolved]
  - Pyrexia [Recovered/Resolved]
  - Chills [Recovered/Resolved]
  - Fatigue [Not Recovered/Not Resolved]
  - Asthenia [Not Recovered/Not Resolved]
  - Asthenia [Fatal]

NARRATIVE: CASE EVENT DATE: 2017
